FAERS Safety Report 7768110-9 (Version None)
Quarter: 2011Q3

REPORT INFORMATION
  Report Type: 
  Country: None (occurrence: None)
  Receive Date: 20110922
  Receipt Date: 20110915
  Transmission Date: 20111222
  Serious: Yes (Hospitalization)
  Sender: FDA-Public Use
  Company Number: DE-BRISTOL-MYERS SQUIBB COMPANY-15755101

PATIENT
  Age: 66 Year
  Sex: Male
  Weight: 90 kg

DRUGS (2)
  1. CETUXIMAB [Suspect]
     Indication: COLORECTAL CANCER METASTATIC
     Dosage: NO OF INF: 18
     Route: 042
     Dates: start: 20101013, end: 20110223
  2. IRINOTECAN HCL [Suspect]
     Indication: COLORECTAL CANCER METASTATIC
     Dosage: NO OF INF: 9
     Route: 042
     Dates: start: 20101013, end: 20110202

REACTIONS (1)
  - ENTEROVESICAL FISTULA [None]
